FAERS Safety Report 5906670-0 (Version None)
Quarter: 2008Q3

REPORT INFORMATION
  Report Type: 
  Country: None (occurrence: None)
  Receive Date: 20080930
  Receipt Date: 20080916
  Transmission Date: 20090109
  Serious: Yes (Death, Life-Threatening)
  Sender: FDA-Public Use
  Company Number: 003993

PATIENT
  Age: 5 Year
  Sex: Male

DRUGS (11)
  1. BUSULFEX [Suspect]
     Indication: STEM CELL TRANSPLANT
     Dosage: 14 ML, INTRAVENOUS
     Route: 030
     Dates: start: 20080721, end: 20080725
  2. MORPHINE ^FANDRE^ (MORPHINE HYDROCHLORIDE) [Suspect]
     Indication: MUCOUS MEMBRANE DISORDER
     Dosage: DAILY, INTRAVENOUS
     Route: 042
     Dates: start: 20080815, end: 20080815
  3. ACETAMINOPHEN [Suspect]
     Indication: PYREXIA
     Dosage: RECTAL
     Route: 054
     Dates: start: 20080815, end: 20080815
  4. HYDROXYZINE HCL [Suspect]
     Indication: PAIN
     Dosage: INTRAVENOUS
     Route: 042
     Dates: start: 20080815, end: 20080815
  5. MICAFUNGIN SODIUM (MICAFUNGIN SODIUM) [Suspect]
     Dosage: INTRAVENOUS
     Route: 042
     Dates: start: 20080815, end: 20080815
  6. PREDNISOLONE SODIUM SUCCINATE INJ [Concomitant]
     Indication: GRAFT VERSUS HOST DISEASE
     Dosage: 40 MG, DAILY DOSE; INTRAVENOUS
     Route: 042
     Dates: start: 20080815, end: 20080815
  7. PREDNISOLONE SODIUM SUCCINATE INJ [Suspect]
     Dosage: INTRAVENOUS
     Route: 042
     Dates: start: 20080822
  8. TACROLIMUS [Suspect]
     Indication: GRAFT VERSUS HOST DISEASE
     Dosage: 0.4 MG, DAILY DOSE; INTRAVENOUS
     Route: 042
     Dates: start: 20080822
  9. MYCOPHENOLATE MOFETIL [Suspect]
     Indication: GRAFT VERSUS HOST DISEASE
     Dosage: 2 G, DAILY DOSE, ORAL
     Route: 048
     Dates: start: 20080822
  10. MELPHALAN (MELPHALAN) [Concomitant]
  11. FLUDARABINE PHOSPHATE [Concomitant]

REACTIONS (28)
  - ACUTE GRAFT VERSUS HOST DISEASE IN SKIN [None]
  - BLOOD CULTURE POSITIVE [None]
  - BLOOD PRESSURE DECREASED [None]
  - BONE MARROW TRANSPLANT [None]
  - CARDIAC ARREST [None]
  - CARDIAC FAILURE ACUTE [None]
  - CARDIOVASCULAR DISORDER [None]
  - COAGULOPATHY [None]
  - CONDITION AGGRAVATED [None]
  - DIARRHOEA [None]
  - ENGRAFTMENT SYNDROME [None]
  - GASTROINTESTINAL NECROSIS [None]
  - GRAFT VERSUS HOST DISEASE [None]
  - HAEMOPTYSIS [None]
  - INTERSTITIAL LUNG DISEASE [None]
  - MELAENA [None]
  - OEDEMA [None]
  - PSEUDOMONAL SEPSIS [None]
  - PSEUDOMONAS INFECTION [None]
  - PULMONARY HAEMORRHAGE [None]
  - PULMONARY TOXICITY [None]
  - PYREXIA [None]
  - RESPIRATORY ARREST [None]
  - RESPIRATORY DISORDER [None]
  - RESPIRATORY FAILURE [None]
  - SHOCK HAEMORRHAGIC [None]
  - THROMBOTIC MICROANGIOPATHY [None]
  - WHITE BLOOD CELL COUNT DECREASED [None]
